FAERS Safety Report 24737547 (Version 1)
Quarter: 2024Q4

REPORT INFORMATION
  Report Type: Spontaneous
  Country: RU (occurrence: RU)
  Receive Date: 20241216
  Receipt Date: 20241216
  Transmission Date: 20250115
  Serious: Yes (Other)
  Sender: ALEXION PHARMACEUTICALS
  Company Number: RU-AstraZeneca-CH-00762103A

PATIENT

DRUGS (8)
  1. OLAPARIB [Suspect]
     Active Substance: OLAPARIB
     Indication: Ovarian cancer
     Dosage: 1 TABLET, UNK
     Route: 065
  2. OLAPARIB [Suspect]
     Active Substance: OLAPARIB
     Dosage: 1 TABLET, UNK
     Route: 065
  3. OLAPARIB [Suspect]
     Active Substance: OLAPARIB
     Dosage: 1 TABLET, UNK
     Route: 065
  4. OLAPARIB [Suspect]
     Active Substance: OLAPARIB
     Dosage: 1 TABLET, UNK
     Route: 065
  5. OLAPARIB [Suspect]
     Active Substance: OLAPARIB
     Dosage: 2 TABLET, UNK
  6. OLAPARIB [Suspect]
     Active Substance: OLAPARIB
     Dosage: 2 TABLET, UNK
  7. EBASTINE [Concomitant]
     Active Substance: EBASTINE
     Route: 065
  8. EBASTINE [Concomitant]
     Active Substance: EBASTINE
     Route: 065

REACTIONS (3)
  - Hypersensitivity [Recovered/Resolved]
  - Asphyxia [Recovered/Resolved]
  - Skin reaction [Recovered/Resolved]
